FAERS Safety Report 8535055-6 (Version None)
Quarter: 2012Q3

REPORT INFORMATION
  Report Type: 
  Country: None (occurrence: None)
  Receive Date: 20120724
  Receipt Date: 20120720
  Transmission Date: 20120928
  Serious: No
  Sender: FDA-Public Use
  Company Number: US-PFIZER INC-2012176240

PATIENT
  Sex: Male
  Weight: 92.971 kg

DRUGS (7)
  1. CHANTIX [Suspect]
     Indication: SMOKING CESSATION THERAPY
     Dosage: 0.5 MG, 1X/DAY
     Route: 048
  2. CHANTIX [Suspect]
     Dosage: UNK
     Route: 048
     Dates: end: 20090101
  3. COPAXONE [Concomitant]
     Indication: MULTIPLE SCLEROSIS
     Dosage: UNK, 1X/DAY
  4. BACLOFEN [Concomitant]
     Indication: MULTIPLE SCLEROSIS
     Dosage: UNK
  5. IBUPROFEN [Concomitant]
     Indication: MULTIPLE SCLEROSIS
     Dosage: UNK
  6. RISPERDAL [Concomitant]
     Indication: MENTAL DISORDER
     Dosage: UNK
  7. LORAZEPAM [Concomitant]
     Indication: MENTAL DISORDER
     Dosage: UNK

REACTIONS (1)
  - ABNORMAL DREAMS [None]
